FAERS Safety Report 8276365-X (Version None)
Quarter: 2012Q2

REPORT INFORMATION
  Report Type: 
  Country: None (occurrence: None)
  Receive Date: 20120409
  Receipt Date: 20120326
  Transmission Date: 20120825
  Serious: Yes (Hospitalization)
  Sender: FDA-Public Use
  Company Number: 2012030246

PATIENT
  Age: 73 Year
  Sex: Male

DRUGS (12)
  1. OMEPRAZOLE [Concomitant]
  2. SIMVASTATIN [Concomitant]
  3. ORAMORPH SR [Concomitant]
  4. DILTIAZEM [Concomitant]
  5. INFUMORPH [Concomitant]
  6. ACETAMINOPHEN [Concomitant]
  7. DEXAMETHASONE [Concomitant]
  8. DALTEPARIN SODIUM [Suspect]
     Indication: LUNG NEOPLASM MALIGNANT
     Dates: start: 20111206, end: 20120131
  9. DALTEPARIN SODIUM [Suspect]
     Indication: LUNG NEOPLASM MALIGNANT
     Dates: start: 20120208
  10. GEMCITABINE [Suspect]
     Dosage: 1140 MG, INTRAVENOUS
     Route: 042
     Dates: start: 20111207, end: 20120205
  11. CARBOPLATIN [Suspect]
     Dosage: 340 MG, INTRAVENOUS
     Route: 042
     Dates: start: 20111207, end: 20120205
  12. DOMPERIDONE (DOMPERIDONE) [Concomitant]

REACTIONS (5)
  - HAEMOGLOBIN DECREASED [None]
  - METASTASES TO SPINE [None]
  - NEOPLASM PROGRESSION [None]
  - LUNG NEOPLASM MALIGNANT [None]
  - PLATELET COUNT DECREASED [None]
